FAERS Safety Report 7693820-1 (Version None)
Quarter: 2011Q3

REPORT INFORMATION
  Report Type: 
  Country: None (occurrence: None)
  Receive Date: 20110819
  Receipt Date: 20110617
  Transmission Date: 20111222
  Serious: No
  Sender: FDA-Public Use
  Company Number: US-ALLERGAN-1108281US

PATIENT
  Age: 85 Year
  Sex: Female

DRUGS (2)
  1. LASTACAFT [Suspect]
     Indication: EYE IRRITATION
     Dosage: 1 GTT, QAM
     Route: 047
     Dates: start: 20110401
  2. REFRESH PLUS [Concomitant]

REACTIONS (1)
  - EYE PAIN [None]
